FAERS Safety Report 20847699 (Version 1)
Quarter: 2022Q2

REPORT INFORMATION
  Report Type: Other
  Country: GB (occurrence: GB)
  Receive Date: 20220519
  Receipt Date: 20220519
  Transmission Date: 20220721
  Serious: Yes (Life-Threatening, Other)
  Sender: FDA-Public Use
  Company Number: GB-Diamond PV Services-GGEL20120700825

PATIENT
  Age: 49 Year
  Sex: Female

DRUGS (10)
  1. TOPIRAMATE [Suspect]
     Active Substance: TOPIRAMATE
     Indication: Psychotic disorder
     Dosage: 300 MG, QD
     Route: 048
     Dates: start: 2007, end: 20120121
  2. TOPIRAMATE [Suspect]
     Active Substance: TOPIRAMATE
     Indication: Schizophrenia
     Dosage: UNK
     Route: 065
  3. MIRTAZAPINE [Suspect]
     Active Substance: MIRTAZAPINE
     Indication: Depressive symptom
     Dosage: 45 MG, QD
     Route: 048
     Dates: start: 2006, end: 20120121
  4. CLOZARIL [Suspect]
     Active Substance: CLOZAPINE
     Indication: Schizophrenia
     Dosage: 75 MG, UNK
     Route: 048
     Dates: start: 20120112, end: 20120117
  5. CLOZARIL [Suspect]
     Active Substance: CLOZAPINE
     Dosage: 650 MG, QID
     Route: 048
     Dates: start: 20060815, end: 20120109
  6. CLOZARIL [Suspect]
     Active Substance: CLOZAPINE
     Dosage: 25 MG, UNK
     Route: 048
  7. CLOZARIL [Suspect]
     Active Substance: CLOZAPINE
     Dosage: UNK
     Route: 048
  8. AMOXICILLIN [Concomitant]
     Active Substance: AMOXICILLIN
     Indication: Toothache
     Dosage: UNK
     Route: 048
     Dates: start: 20120116, end: 20120126
  9. ZOPICLONE [Concomitant]
     Active Substance: ZOPICLONE
     Indication: Sleep disorder
     Dosage: 2.5 MG, UNK
     Route: 048
  10. QUETIAPINE FUMARATE [Concomitant]
     Active Substance: QUETIAPINE FUMARATE
     Indication: Tooth infection
     Dosage: UNK
     Route: 065
     Dates: start: 2007

REACTIONS (12)
  - Road traffic accident [Recovered/Resolved]
  - Eosinophil count decreased [Recovered/Resolved]
  - Injury [Unknown]
  - Scratch [Unknown]
  - Toothache [Recovered/Resolved]
  - Tooth infection [Recovered/Resolved]
  - Infection susceptibility increased [Unknown]
  - Neutropenia [Recovered/Resolved]
  - Neutrophil count decreased [Recovered/Resolved]
  - White blood cell count decreased [Recovered/Resolved]
  - Platelet count decreased [Recovered/Resolved]
  - Off label use [Recovered/Resolved]

NARRATIVE: CASE EVENT DATE: 20070101
